FAERS Safety Report 9138953 (Version 1)
Quarter: 2013Q1

REPORT INFORMATION
  Report Type: Spontaneous
  Country: BR (occurrence: BR)
  Receive Date: 20130305
  Receipt Date: 20130305
  Transmission Date: 20140127
  Serious: Yes (Hospitalization)
  Sender: FDA-Public Use
  Company Number: BR-BRISTOL-MYERS SQUIBB COMPANY-17419268

PATIENT
  Age: 30 Year
  Sex: Male

DRUGS (4)
  1. ABILIFY TABS 30 MG [Suspect]
     Indication: SCHIZOPHRENIA, RESIDUAL TYPE
     Dosage: STARTED 2 YEAR AGO,CURRENT DOSE: 45MG
     Route: 048
  2. RISPERIDONE [Suspect]
     Indication: SCHIZOPHRENIA, RESIDUAL TYPE
  3. DEPAKOTE [Concomitant]
  4. TOPIRAMATE [Concomitant]

REACTIONS (5)
  - Psychotic disorder [Unknown]
  - Urticaria [Unknown]
  - Aggression [Unknown]
  - Thyroid disorder [Unknown]
  - Prescribed overdose [Unknown]
